FAERS Safety Report 9931251 (Version 2)
Quarter: 2014Q1

REPORT INFORMATION
  Report Type: Spontaneous
  Country: HU (occurrence: HU)
  Receive Date: 20140228
  Receipt Date: 20140306
  Transmission Date: 20141002
  Serious: Yes (Other)
  Sender: FDA-Public Use
  Company Number: HU-AMGEN-HUNSP2014012846

PATIENT
  Age: 81 Year
  Sex: Female

DRUGS (8)
  1. PROLIA [Suspect]
     Indication: OSTEOPOROSIS
     Dosage: UNK
     Route: 065
     Dates: start: 2013
  2. ATORVA [Concomitant]
  3. DITROPAN [Concomitant]
  4. ESOMEPRAZOL                        /01479301/ [Concomitant]
  5. DOXAZOSIN [Concomitant]
  6. NORTIVAN [Concomitant]
  7. SINOTAB [Concomitant]
  8. VITAMIN D                          /00107901/ [Concomitant]
     Dosage: 3000 IU, QD

REACTIONS (2)
  - Femur fracture [Unknown]
  - Blood parathyroid hormone increased [Unknown]
